FAERS Safety Report 6098035-9 (Version None)
Quarter: 2009Q1

REPORT INFORMATION
  Report Type: 
  Country: None (occurrence: None)
  Receive Date: 20090227
  Receipt Date: 20090220
  Transmission Date: 20090719
  Serious: Yes (Other)
  Sender: FDA-Public Use
  Company Number: PHHY2009CA04741

PATIENT
  Sex: Female

DRUGS (1)
  1. ACLASTA [Suspect]
     Indication: OSTEOPOROSIS
     Dosage: 1 DF, ONCE/SINGLE
     Route: 042
     Dates: start: 20090205

REACTIONS (8)
  - ARTHRALGIA [None]
  - BONE PAIN [None]
  - DIZZINESS [None]
  - EYELID OEDEMA [None]
  - JOINT SWELLING [None]
  - LIP SWELLING [None]
  - NAUSEA [None]
  - PYREXIA [None]
